FAERS Safety Report 14684382 (Version 1)
Quarter: 2018Q1

REPORT INFORMATION
  Report Type: Spontaneous
  Country: US (occurrence: US)
  Receive Date: 20180327
  Receipt Date: 20180327
  Transmission Date: 20180509
  Serious: No
  Sender: FDA-Public Use
  Company Number: US-ASTRAZENECA-2018SE26215

PATIENT
  Age: 24725 Day
  Sex: Female
  Weight: 65.8 kg

DRUGS (2)
  1. EXTAVIA [Concomitant]
     Active Substance: INTERFERON BETA-1B
  2. FASLODEX [Suspect]
     Active Substance: FULVESTRANT
     Indication: BREAST CANCER METASTATIC
     Route: 030
     Dates: start: 20180115, end: 20180226

REACTIONS (16)
  - Stupor [Not Recovered/Not Resolved]
  - Red blood cell count decreased [Unknown]
  - Feeling abnormal [Unknown]
  - Back pain [Unknown]
  - Bone pain [Not Recovered/Not Resolved]
  - Blood pressure decreased [Unknown]
  - Delirium [Not Recovered/Not Resolved]
  - Mental disorder [Not Recovered/Not Resolved]
  - Arthralgia [Not Recovered/Not Resolved]
  - Hallucination [Not Recovered/Not Resolved]
  - Heart rate decreased [Unknown]
  - Coordination abnormal [Unknown]
  - Mental impairment [Not Recovered/Not Resolved]
  - Pyrexia [Unknown]
  - Gait disturbance [Not Recovered/Not Resolved]
  - Intentional product misuse [Unknown]

NARRATIVE: CASE EVENT DATE: 201802
